FAERS Safety Report 11380051 (Version 15)
Quarter: 2018Q2

REPORT INFORMATION
  Report Type: Report from Study
  Country: CN (occurrence: CN)
  Receive Date: 20150814
  Receipt Date: 20180524
  Transmission Date: 20180711
  Serious: Yes (Hospitalization)
  Sender: FDA-Public Use
  Company Number: PHHY2015CN090317

PATIENT
  Age: 28 Year
  Sex: Male
  Weight: 53 kg

DRUGS (7)
  1. NEORAL [Suspect]
     Active Substance: CYCLOSPORINE
     Indication: RENAL TRANSPLANT
     Dosage: 150 MG, QD
     Route: 048
     Dates: start: 20151022
  2. MYFORTIC [Suspect]
     Active Substance: MYCOPHENOLATE SODIUM
     Indication: PROPHYLAXIS AGAINST TRANSPLANT REJECTION
     Dosage: 1080 MG, QD
     Route: 048
     Dates: start: 20160111
  3. CICLOSPORINE [Concomitant]
     Active Substance: CYCLOSPORINE
     Indication: IMMUNOSUPPRESSANT DRUG THERAPY
     Dosage: 300 MG, QD
     Route: 065
     Dates: start: 20150721
  4. METHYLPREDNISOLONE. [Concomitant]
     Active Substance: METHYLPREDNISOLONE
     Indication: IMMUNOSUPPRESSANT DRUG THERAPY
  5. METHYLPREDNISOLONE. [Concomitant]
     Active Substance: METHYLPREDNISOLONE
     Indication: KIDNEY TRANSPLANT REJECTION
     Dosage: 16 MG, QD
     Route: 065
     Dates: start: 20150721
  6. CALCITRIOL. [Concomitant]
     Active Substance: CALCITRIOL
     Indication: PROPHYLAXIS
     Dosage: 1 UG, QD
     Route: 065
     Dates: start: 20150721
  7. MYFORTIC [Suspect]
     Active Substance: MYCOPHENOLATE SODIUM
     Indication: RENAL TRANSPLANT
     Dosage: 1440 MG, QD
     Route: 048
     Dates: start: 20150712, end: 20160110

REACTIONS (10)
  - Scrotal pain [Unknown]
  - Urine output decreased [Not Recovered/Not Resolved]
  - Extravasation of urine [Not Recovered/Not Resolved]
  - Pyrexia [Recovered/Resolved]
  - Urinary fistula [Recovered/Resolved]
  - Pyrexia [Recovered/Resolved]
  - Epididymitis [Recovered/Resolved]
  - Urinary tract infection enterococcal [Recovered/Resolved]
  - Urinary tract infection [Recovered/Resolved]
  - Lung infection [Recovered/Resolved]

NARRATIVE: CASE EVENT DATE: 201507
